FAERS Safety Report 8509038-6 (Version None)
Quarter: 2012Q3

REPORT INFORMATION
  Report Type: 
  Country: None (occurrence: None)
  Receive Date: 20120702
  Receipt Date: 20120619
  Transmission Date: 20120928
  Serious: No
  Sender: FDA-Public Use
  Company Number: 2012JP006581

PATIENT
  Age: 58 Year
  Sex: Male

DRUGS (27)
  1. ADALAT [Concomitant]
  2. TELEMINSOFT (BISACODYL) [Concomitant]
  3. TOWARAT (NIFEDIPINE) [Concomitant]
  4. HACHIAZULE (SODIUM BICARBONATE, SODIUM GUALENATE) [Concomitant]
  5. MANNITOL [Concomitant]
  6. FLOMOX (CEFCAPENE PIVOXIL HYDROCHLORIDE) [Concomitant]
  7. AMARYL [Concomitant]
  8. SHITEI (HERBAL MEDICINE) [Concomitant]
  9. SELBEX (TEPRENONE) [Concomitant]
  10. CISPLATIN [Concomitant]
  11. CALBLOCK (AZELNIDIPINE) [Concomitant]
  12. HUMACART R (INSULIN HUMAN) [Concomitant]
  13. MAGMITT (MAGNESIUM OXIDE) [Concomitant]
  14. GEMZAR [Concomitant]
  15. SOLDEM 3A (CARBOHYDRATES NOS, POTASSIUM CHLORIDE, SODIUM CHLORIDE, SOD [Concomitant]
  16. LASIX [Concomitant]
  17. DEXAMETHASONE SODIUM PHOSPHATE [Concomitant]
  18. ADOFEED (FLURBIPROFEN) [Concomitant]
  19. HUMULIN R [Concomitant]
  20. MAGNESIUM HYDROXIDE TAB [Concomitant]
  21. YODEL (SENNA ALEXANDRINA) [Concomitant]
  22. ALOXI [Suspect]
     Indication: PROPHYLAXIS OF NAUSEA AND VOMITING
     Dosage: 0.75 MG, ON DAY 1 OF EACH CYCLE, INTRAVENOUS
     Route: 042
     Dates: start: 20051212, end: 20070110
  23. ISODINE (POVIDONE-IODINE) [Concomitant]
  24. GLYCEROL 2.6% [Concomitant]
  25. HUMULIN N [Concomitant]
  26. HUMALOG [Concomitant]
  27. HEPARIN [Concomitant]

REACTIONS (6)
  - BLOOD CHLORIDE DECREASED [None]
  - ELECTROCARDIOGRAM QT PROLONGED [None]
  - TACHYCARDIA [None]
  - BLOOD SODIUM DECREASED [None]
  - ATRIAL FIBRILLATION [None]
  - BLOOD GLUCOSE INCREASED [None]
